FAERS Safety Report 16020969 (Version 2)
Quarter: 2019Q2

REPORT INFORMATION
  Report Type: Spontaneous
  Country: US (occurrence: US)
  Receive Date: 20190301
  Receipt Date: 20190625
  Transmission Date: 20190711
  Serious: No
  Sender: FDA-Public Use
  Company Number: US-PFIZER INC-2019083599

PATIENT
  Age: 60 Year
  Sex: Female
  Weight: 73 kg

DRUGS (1)
  1. IBRANCE [Suspect]
     Active Substance: PALBOCICLIB
     Indication: BREAST CANCER METASTATIC
     Dosage: 100 MG, CYCLIC (D1-21Q 28 DAYS)
     Route: 048
     Dates: start: 201710

REACTIONS (5)
  - Product dose omission [Unknown]
  - Memory impairment [Unknown]
  - Seasonal allergy [Unknown]
  - Lethargy [Unknown]
  - Fatigue [Unknown]
